FAERS Safety Report 6327167-2 (Version None)
Quarter: 2009Q3

REPORT INFORMATION
  Report Type: 
  Country: None (occurrence: None)
  Receive Date: 20090825
  Receipt Date: 20090821
  Transmission Date: 20100115
  Serious: Yes (Other)
  Sender: FDA-Public Use
  Company Number: D0062700A

PATIENT
  Sex: Male
  Weight: 55 kg

DRUGS (2)
  1. LAMICTAL [Suspect]
     Dosage: 350MG TWICE PER DAY
     Route: 048
  2. VALPROATE SODIUM [Suspect]
     Route: 065
     Dates: start: 20090801

REACTIONS (7)
  - ALTERED STATE OF CONSCIOUSNESS [None]
  - DELIRIUM [None]
  - DRUG INTERACTION [None]
  - OVERDOSE [None]
  - PARANOIA [None]
  - POISONING [None]
  - RESTLESSNESS [None]
